FAERS Safety Report 8503438-6 (Version None)
Quarter: 2012Q3

REPORT INFORMATION
  Report Type: 
  Country: None (occurrence: None)
  Receive Date: 20120711
  Receipt Date: 20120703
  Transmission Date: 20120928
  Serious: Yes (Hospitalization)
  Sender: FDA-Public Use
  Company Number: US-GLAXOSMITHKLINE-A0859560A

PATIENT
  Age: 43 Year
  Sex: Male

DRUGS (1)
  1. AVANDIA [Suspect]
     Indication: DIABETES MELLITUS
     Dosage: 4MG TWICE PER DAY
     Route: 048
     Dates: start: 19990101, end: 20070510

REACTIONS (5)
  - RENAL FAILURE CHRONIC [None]
  - CARDIAC DISORDER [None]
  - MITRAL VALVE DISEASE [None]
  - BRAIN STEM INFARCTION [None]
  - ARTERIOSCLEROSIS CORONARY ARTERY [None]
